FAERS Safety Report 10606473 (Version 1)
Quarter: 2014Q4

REPORT INFORMATION
  Report Type: Spontaneous
  Country: US (occurrence: None)
  Receive Date: 20141121
  Receipt Date: 20141121
  Transmission Date: 20150529
  Serious: Yes (Other)
  Sender: FDA-Public Use
  Company Number: 2014SA156309

PATIENT
  Age: 61 Year
  Sex: Male

DRUGS (1)
  1. ANALGESIC (TROLAMINE SALICYLATE) [Suspect]
     Active Substance: TROLAMINE SALICYLATE

REACTIONS (4)
  - Cerebrovascular accident [None]
  - Paralysis [None]
  - Back pain [None]
  - Foot fracture [None]
